FAERS Safety Report 6010989-5 (Version None)
Quarter: 2008Q4

REPORT INFORMATION
  Report Type: 
  Country: None (occurrence: None)
  Receive Date: 20081218
  Receipt Date: 20081217
  Transmission Date: 20090506
  Serious: Yes (Other)
  Sender: FDA-Public Use
  Company Number: B0550736A

PATIENT
  Age: 49 Year
  Sex: Female

DRUGS (2)
  1. KIVEXA [Suspect]
     Indication: HIV INFECTION
     Route: 048
  2. NEVIRAPINE [Suspect]
     Indication: HIV INFECTION

REACTIONS (4)
  - CARDIOVASCULAR DISORDER [None]
  - DIABETES MELLITUS [None]
  - HYPERTENSION [None]
  - OVERWEIGHT [None]
